FAERS Safety Report 4777105-9 (Version None)
Quarter: 2005Q3

REPORT INFORMATION
  Report Type: 
  Country: None (occurrence: None)
  Receive Date: 20050923
  Receipt Date: 20050919
  Transmission Date: 20060218
  Serious: Yes (Death, Hospitalization)
  Sender: FDA-Public Use
  Company Number: US-JNJFOC-20050606463

PATIENT
  Sex: Female
  Weight: 44.91 kg

DRUGS (4)
  1. DURAGESIC-100 [Suspect]
     Route: 062
     Dates: start: 20041001
  2. PERCOCET [Concomitant]
     Route: 048
  3. PERCOCET [Concomitant]
     Indication: PAIN
     Route: 048
  4. COUMADIN [Concomitant]
     Indication: DRUG USE FOR UNKNOWN INDICATION

REACTIONS (2)
  - DEATH [None]
  - HIP FRACTURE [None]
